FAERS Safety Report 10042227 (Version 3)
Quarter: 2014Q2

REPORT INFORMATION
  Report Type: Report from Study
  Country: GR (occurrence: GR)
  Receive Date: 20140327
  Receipt Date: 20140422
  Transmission Date: 20141212
  Serious: Yes (Death)
  Sender: FDA-Public Use
  Company Number: GR-GLAXOSMITHKLINE-B0978816A

PATIENT
  Sex: Male
  Weight: 100 kg

DRUGS (1)
  1. ZANAMIVIR [Suspect]
     Indication: H1N1 INFLUENZA
     Route: 042
     Dates: start: 20140308

REACTIONS (1)
  - Multi-organ failure [Fatal]
